FAERS Safety Report 21751130 (Version 1)
Quarter: 2022Q4

REPORT INFORMATION
  Report Type: Spontaneous
  Country: CN (occurrence: CN)
  Receive Date: 20221220
  Receipt Date: 20221220
  Transmission Date: 20230113
  Serious: Yes (Other)
  Sender: FDA-Public Use
  Company Number: None

PATIENT
  Age: 58 Year
  Sex: Female
  Weight: 74 kg

DRUGS (9)
  1. CYCLOPHOSPHAMIDE [Suspect]
     Active Substance: CYCLOPHOSPHAMIDE
     Indication: Breast cancer female
     Dosage: 1000 MG, D1 Q14D, DILUTED WITH 100 ML OF 0.9% SODIUM CHLORIDE
     Route: 041
     Dates: start: 20221027, end: 20221027
  2. CYCLOPHOSPHAMIDE [Suspect]
     Active Substance: CYCLOPHOSPHAMIDE
     Indication: Chemotherapy
     Dosage: 1000 MG, D1 Q14D, DILUTED WITH 100 ML OF 0.9% SODIUM CHLORIDE
     Route: 041
     Dates: start: 20221120, end: 20221120
  3. SODIUM CHLORIDE [Suspect]
     Active Substance: SODIUM CHLORIDE
     Indication: Medication dilution
     Dosage: 100 ML, D1 Q14D, USED TO DILUTE 1000 MG CYCLOPHOSPHAMIDE
     Route: 041
     Dates: start: 20221027, end: 20221027
  4. SODIUM CHLORIDE [Suspect]
     Active Substance: SODIUM CHLORIDE
     Dosage: 100 ML, D1 Q14D, USED TO DILUTE 1000 MG CYCLOPHOSPHAMIDE
     Route: 041
     Dates: start: 20221120, end: 20221120
  5. SODIUM CHLORIDE [Suspect]
     Active Substance: SODIUM CHLORIDE
     Dosage: UNK
     Route: 041
     Dates: start: 20221120, end: 20221120
  6. DEXTROSE MONOHYDRATE [Suspect]
     Active Substance: DEXTROSE MONOHYDRATE
     Indication: Medication dilution
     Dosage: 100 ML, D1, USED TO DILUTE 100 MG PIRARUBICIN HYDROCHLORIDE
     Route: 041
     Dates: start: 20221027, end: 20221027
  7. DEXTROSE MONOHYDRATE [Suspect]
     Active Substance: DEXTROSE MONOHYDRATE
     Dosage: 100 ML, D1, USED TO DILUTE 100 MG PIRARUBICIN HYDROCHLORIDE
     Route: 041
     Dates: start: 20221120, end: 20221120
  8. PIRARUBICIN HYDROCHLORIDE [Suspect]
     Active Substance: PIRARUBICIN HYDROCHLORIDE
     Indication: Breast cancer female
     Dosage: 100 MG, D1, DILUTED WITH 100 ML OF 5% GLUCOSE
     Route: 041
     Dates: start: 20221027, end: 20221027
  9. PIRARUBICIN HYDROCHLORIDE [Suspect]
     Active Substance: PIRARUBICIN HYDROCHLORIDE
     Indication: Chemotherapy
     Dosage: 100 MG, D1, DILUTED WITH 100 ML OF 5% GLUCOSE
     Route: 041
     Dates: start: 20221120, end: 20221120

REACTIONS (4)
  - Cardiotoxicity [Unknown]
  - Adverse drug reaction [Unknown]
  - Coronary artery disease [Unknown]
  - Electrocardiogram abnormal [Recovering/Resolving]

NARRATIVE: CASE EVENT DATE: 20221119
